FAERS Safety Report 7727794-1 (Version None)
Quarter: 2011Q3

REPORT INFORMATION
  Report Type: 
  Country: None (occurrence: None)
  Receive Date: 20110905
  Receipt Date: 20110831
  Transmission Date: 20111222
  Serious: Yes (Hospitalization)
  Sender: FDA-Public Use
  Company Number: US-BRISTOL-MYERS SQUIBB COMPANY-15554363

PATIENT
  Age: 70 Year
  Sex: Male
  Weight: 82 kg

DRUGS (23)
  1. CETUXIMAB [Suspect]
     Indication: NON-SMALL CELL LUNG CANCER
     Dosage: INTERUPTED ON 27OCT10;RESTART ON 03NOV10
     Route: 042
     Dates: start: 20100816
  2. SPIRIVA [Concomitant]
     Route: 055
  3. DOXYCYCLINE [Concomitant]
     Route: 048
  4. FLORINEF [Concomitant]
  5. MAGNESIUM [Concomitant]
  6. SYMBICORT [Concomitant]
     Dosage: 2DF= 2 PUFFS
     Route: 055
  7. MEGACE [Concomitant]
     Route: 048
  8. SIMVASTATIN [Concomitant]
  9. DETROL [Concomitant]
  10. THIOCTIC ACID [Concomitant]
  11. COREG [Concomitant]
     Route: 048
  12. POTASSIUM CHLORIDE [Concomitant]
  13. PYRIDOXINE HCL [Concomitant]
  14. GABAPENTIN [Concomitant]
  15. CARBOPLATIN [Suspect]
     Indication: NON-SMALL CELL LUNG CANCER
     Route: 042
     Dates: start: 20100816, end: 20101020
  16. MAGNESIUM OXIDE [Concomitant]
  17. KAPIDEX [Concomitant]
  18. PACLITAXEL [Suspect]
     Indication: NON-SMALL CELL LUNG CANCER
     Route: 042
     Dates: start: 20100816, end: 20101020
  19. PLAVIX [Concomitant]
     Route: 048
  20. JANUMET [Concomitant]
     Dosage: 1DF= 50/1000 MG
     Route: 048
  21. CARVEDILOL [Concomitant]
  22. VITAMIN B-12 [Concomitant]
  23. ASPIRIN [Concomitant]
     Route: 048

REACTIONS (1)
  - MUSCULAR WEAKNESS [None]
